FAERS Safety Report 26101873 (Version 1)
Quarter: 2025Q4

REPORT INFORMATION
  Report Type: Spontaneous
  Country: AU (occurrence: AU)
  Receive Date: 20251128
  Receipt Date: 20251128
  Transmission Date: 20260117
  Serious: Yes (Other)
  Sender: SANDOZ
  Company Number: AU-SANDOZ-SDZ2025AU088652

PATIENT
  Sex: Male

DRUGS (1)
  1. ERELZI [Suspect]
     Active Substance: ETANERCEPT-SZZS
     Indication: Product used for unknown indication
     Dosage: UNK, 50 MG
     Route: 065

REACTIONS (6)
  - Paralysis [Unknown]
  - Feeling abnormal [Unknown]
  - Activities of daily living decreased [Unknown]
  - Fatigue [Unknown]
  - Injection site pain [Unknown]
  - Product substitution issue [Unknown]
